FAERS Safety Report 6566681-1 (Version None)
Quarter: 2010Q1

REPORT INFORMATION
  Report Type: 
  Country: None (occurrence: None)
  Receive Date: 20100202
  Receipt Date: 20100127
  Transmission Date: 20100710
  Serious: Yes (Death)
  Sender: FDA-Public Use
  Company Number: US-SANOFI-AVENTIS-2010SA005515

PATIENT
  Age: 74 Year
  Sex: Male

DRUGS (13)
  1. CARAC [Suspect]
     Indication: ACTINIC KERATOSIS
     Dosage: APPLY TO FACE AND SCALP ONCE DAILY FOR 17-28 NIGHTS
     Route: 061
     Dates: start: 20091116
  2. REMICADE [Concomitant]
  3. EXELON [Concomitant]
  4. FLUCONAZOLE [Concomitant]
  5. FOLIC ACID [Concomitant]
  6. ASPIRIN [Concomitant]
  7. FEOSOL [Concomitant]
  8. METHOTREXATE [Concomitant]
  9. VYTORIN [Concomitant]
  10. CALCIUM/VITAMIN D [Concomitant]
  11. ALENDRONATE SODIUM [Concomitant]
  12. ALL OTHER NON-THERAPEUTIC PRODUCTS [Concomitant]
  13. ALL OTHER NON-THERAPEUTIC PRODUCTS [Concomitant]

REACTIONS (1)
  - INFECTION [None]
